FAERS Safety Report 7106010-8 (Version None)
Quarter: 2010Q4

REPORT INFORMATION
  Report Type: 
  Country: None (occurrence: None)
  Receive Date: 20101110
  Receipt Date: 20101101
  Transmission Date: 20110411
  Serious: Yes (Other)
  Sender: FDA-Public Use
  Company Number: 2010US004429

PATIENT
  Sex: Female

DRUGS (1)
  1. AMBISOME [Suspect]
     Indication: ASPERGILLOSIS
     Dosage: 100 MG, UID/QD, IV NOS
     Route: 042

REACTIONS (2)
  - ANURIA [None]
  - DISSEMINATED INTRAVASCULAR COAGULATION [None]
